FAERS Safety Report 25650580 (Version 2)
Quarter: 2025Q3

REPORT INFORMATION
  Report Type: Spontaneous
  Country: CA (occurrence: CA)
  Receive Date: 20250806
  Receipt Date: 20250924
  Transmission Date: 20251020
  Serious: Yes (Other)
  Sender: CIPHER
  Company Number: CA-CIPHER-2025-CA-000506

PATIENT
  Age: 34 Year
  Sex: Female
  Weight: 34 kg

DRUGS (22)
  1. TRAMADOL HYDROCHLORIDE [Suspect]
     Active Substance: TRAMADOL HYDROCHLORIDE
     Indication: Product used for unknown indication
  2. ERGOCALCIFEROL [Suspect]
     Active Substance: ERGOCALCIFEROL
  3. FOLATE SODIUM [Suspect]
     Active Substance: FOLATE SODIUM
  4. HYDROMORPHONE [Suspect]
     Active Substance: HYDROMORPHONE
  5. MOXIFLOXACIN [Suspect]
     Active Substance: MOXIFLOXACIN
  6. NEOMYCIN [Concomitant]
     Active Substance: NEOMYCIN
  7. OMALIZUMAB [Suspect]
     Active Substance: OMALIZUMAB
     Route: 058
  8. POLYMYXIN B SULFATE [Suspect]
     Active Substance: POLYMYXIN B SULFATE
  9. PREDNISONE [Suspect]
     Active Substance: PREDNISONE
  10. RISEDRONATE SODIUM [Suspect]
     Active Substance: RISEDRONATE SODIUM
  11. RITUXIMAB [Suspect]
     Active Substance: RITUXIMAB
     Route: 042
  12. ASPIRIN [Suspect]
     Active Substance: ASPIRIN
  13. ROSUVASTATIN [Suspect]
     Active Substance: ROSUVASTATIN
  14. SINGULAIR [Suspect]
     Active Substance: MONTELUKAST SODIUM
  15. THEOPHYLLINE [Suspect]
     Active Substance: THEOPHYLLINE
  16. ADVAIR HFA [Suspect]
     Active Substance: FLUTICASONE PROPIONATE\SALMETEROL XINAFOATE
  17. AMLODIPINE BESYLATE [Suspect]
     Active Substance: AMLODIPINE BESYLATE
  18. BECLOMETHASONE [Suspect]
     Active Substance: BECLOMETHASONE
  19. CALCIUM [Suspect]
     Active Substance: CALCIUM
  20. CEFADROXIL [Concomitant]
     Active Substance: CEFADROXIL
  21. CIPROFLOXACIN [Suspect]
     Active Substance: CIPROFLOXACIN
  22. CLONAZEPAM [Suspect]
     Active Substance: CLONAZEPAM

REACTIONS (13)
  - Vomiting [Unknown]
  - Cough [Unknown]
  - Dyspnoea [Unknown]
  - Respiratory tract infection [Unknown]
  - Wheezing [Unknown]
  - Asthma [Unknown]
  - Chest pain [Unknown]
  - Drug hypersensitivity [Unknown]
  - Malaise [Unknown]
  - Nasal oedema [Unknown]
  - Oedema [Unknown]
  - Pain [Unknown]
  - Pneumonia [Unknown]
